FAERS Safety Report 13655208 (Version 1)
Quarter: 2017Q2

REPORT INFORMATION
  Report Type: Spontaneous
  Country: FR (occurrence: FR)
  Receive Date: 20170615
  Receipt Date: 20170615
  Transmission Date: 20170830
  Serious: Yes (Hospitalization)
  Sender: FDA-Public Use
  Company Number: FR-009507513-1706FRA003869

PATIENT
  Age: 64 Year
  Sex: Female

DRUGS (6)
  1. CUBICIN [Suspect]
     Active Substance: DAPTOMYCIN
     Indication: SEPSIS
     Dosage: 850 MG, QD
     Route: 042
     Dates: start: 20170419, end: 20170502
  2. RIFAMPIN. [Suspect]
     Active Substance: RIFAMPIN
     Indication: SEPSIS
     Dosage: 600 MG, BID
     Route: 048
     Dates: start: 20170502, end: 20170502
  3. CUBICIN [Suspect]
     Active Substance: DAPTOMYCIN
     Dosage: 850 MG, QD
     Route: 042
     Dates: start: 20170506, end: 20170511
  4. ATORVASTATIN [Concomitant]
     Active Substance: ATORVASTATIN
     Dosage: 10 MG, QD
     Route: 048
     Dates: end: 20170503
  5. DOXYCYCLINE. [Suspect]
     Active Substance: DOXYCYCLINE
     Indication: SEPSIS
     Dosage: 100 MG, BID
     Route: 048
     Dates: start: 20170502, end: 20170502
  6. CUBICIN [Suspect]
     Active Substance: DAPTOMYCIN
     Dosage: 700 MG, QD
     Route: 042
     Dates: start: 20170512, end: 20170515

REACTIONS (2)
  - Rash [Recovered/Resolved]
  - Oedema mouth [Recovered/Resolved]

NARRATIVE: CASE EVENT DATE: 20170502
